FAERS Safety Report 18827311 (Version 3)
Quarter: 2021Q3

REPORT INFORMATION
  Report Type: Report from Study
  Country: US (occurrence: US)
  Receive Date: 20210202
  Receipt Date: 20210928
  Transmission Date: 20211014
  Serious: Yes (Hospitalization)
  Sender: FDA-Public Use
  Company Number: NVSC2021US018496

PATIENT
  Sex: Female

DRUGS (1)
  1. ENTRESTO [Suspect]
     Active Substance: SACUBITRIL\VALSARTAN
     Indication: CARDIAC FAILURE
     Dosage: UNK
     Route: 048

REACTIONS (6)
  - Fatigue [Recovering/Resolving]
  - Product availability issue [Unknown]
  - Oropharyngeal pain [Unknown]
  - Nasal congestion [Unknown]
  - COVID-19 [Recovering/Resolving]
  - Cough [Unknown]
